FAERS Safety Report 13864958 (Version 3)
Quarter: 2017Q3

REPORT INFORMATION
  Report Type: Spontaneous
  Country: CA (occurrence: CA)
  Receive Date: 20170814
  Receipt Date: 20170823
  Transmission Date: 20171127
  Serious: Yes (Other)
  Sender: FDA-Public Use
  Company Number: CA-PFIZER INC-2015286770

PATIENT
  Age: 40 Year
  Sex: Female

DRUGS (13)
  1. ARAVA [Suspect]
     Active Substance: LEFLUNOMIDE
     Dosage: UNK
     Route: 065
  2. HUMIRA [Suspect]
     Active Substance: ADALIMUMAB
     Dosage: 40 MG, UNK
     Route: 058
     Dates: start: 200602, end: 200605
  3. RITUXAN [Suspect]
     Active Substance: RITUXIMAB
     Dosage: 1000 MG, 2X/DAY
     Route: 042
     Dates: start: 201304, end: 201308
  4. ACTEMRA [Suspect]
     Active Substance: TOCILIZUMAB
     Indication: RHEUMATOID ARTHRITIS
     Dosage: 8 MG/KG, UNK
     Route: 065
     Dates: start: 201504, end: 20150819
  5. ENBREL [Suspect]
     Active Substance: ETANERCEPT
     Indication: RHEUMATOID ARTHRITIS
     Dosage: 50 MG, UNK
     Route: 058
     Dates: start: 200503, end: 200602
  6. SULFASALAZINE. [Suspect]
     Active Substance: SULFASALAZINE
     Indication: RHEUMATOID ARTHRITIS
     Dosage: UNK
  7. ORENCIA [Suspect]
     Active Substance: ABATACEPT
     Dosage: 750 MG, UNK (7 YEARS)
     Route: 042
     Dates: start: 200701, end: 201304
  8. METHOTREXATE SODIUM. [Suspect]
     Active Substance: METHOTREXATE SODIUM
     Indication: RHEUMATOID ARTHRITIS
     Dosage: UNK
  9. PREDNISONE. [Suspect]
     Active Substance: PREDNISONE
     Indication: RHEUMATOID ARTHRITIS
     Dosage: 20 MG, 1X/DAY
     Route: 048
  10. GOLD [Suspect]
     Active Substance: GOLD
     Dosage: UNK
  11. REMICADE [Suspect]
     Active Substance: INFLIXIMAB
     Dosage: 500 MG, UNK (9 MONTHS)
     Route: 042
     Dates: start: 200605, end: 200701
  12. SIMPONI [Suspect]
     Active Substance: GOLIMUMAB
     Dosage: 50 MG, UNK
     Route: 058
     Dates: start: 201308, end: 201503
  13. LEFLUNOMIDE. [Suspect]
     Active Substance: LEFLUNOMIDE
     Dosage: UNK

REACTIONS (7)
  - Joint swelling [Not Recovered/Not Resolved]
  - Rheumatoid arthritis [Not Recovered/Not Resolved]
  - Arthralgia [Not Recovered/Not Resolved]
  - Condition aggravated [Not Recovered/Not Resolved]
  - Drug ineffective [Not Recovered/Not Resolved]
  - Hepatic enzyme increased [Not Recovered/Not Resolved]
  - Treatment failure [Not Recovered/Not Resolved]
